FAERS Safety Report 6486602-X (Version None)
Quarter: 2009Q4

REPORT INFORMATION
  Report Type: 
  Country: None (occurrence: None)
  Receive Date: 20091209
  Receipt Date: 20091209
  Transmission Date: 20100525
  Serious: Yes (Life-Threatening, Hospitalization, Disabling)
  Sender: FDA-Public Use
  Company Number: None

PATIENT
  Age: 63 Year
  Sex: Male
  Weight: 80 kg

DRUGS (7)
  1. LISINOPRIL AND HYDROCHLOROTHIAZIDE [Suspect]
     Indication: HYPERTENSION
     Dosage: 20/25 DAILY PO, YEARS
     Route: 048
  2. TESSALON [Suspect]
     Indication: COUGH
     Dosage: PO
     Route: 048
  3. LISINOPRIL [Concomitant]
  4. ATENOLOL [Concomitant]
  5. ASPIRIN [Concomitant]
  6. TESSALON [Concomitant]
  7. ZITHROMAX [Concomitant]

REACTIONS (5)
  - ANGIOEDEMA [None]
  - DYSPNOEA [None]
  - RESPIRATORY ARREST [None]
  - SPEECH DISORDER [None]
  - URTICARIA [None]
